FAERS Safety Report 23755056 (Version 1)
Quarter: 2024Q2

REPORT INFORMATION
  Report Type: Spontaneous
  Country: US (occurrence: US)
  Receive Date: 20240418
  Receipt Date: 20240418
  Transmission Date: 20240716
  Serious: Yes (Life-Threatening, Hospitalization, Other)
  Sender: FDA-Public Use
  Company Number: US-MACLEODS PHARMA-MAC2024046911

PATIENT
  Age: 28 Year
  Sex: Male

DRUGS (1)
  1. PROPYLTHIOURACIL [Suspect]
     Active Substance: PROPYLTHIOURACIL
     Indication: Graves^ disease
     Route: 065

REACTIONS (4)
  - Atrial fibrillation [Unknown]
  - Acute respiratory distress syndrome [Unknown]
  - Hepatic necrosis [Recovered/Resolved]
  - Acute hepatic failure [Recovered/Resolved]
